FAERS Safety Report 8444173-2 (Version None)
Quarter: 2012Q2

REPORT INFORMATION
  Report Type: 
  Country: None (occurrence: None)
  Receive Date: 20120323
  Receipt Date: 20110826
  Transmission Date: 20120825
  Serious: Yes (Hospitalization)
  Sender: FDA-Public Use
  Company Number: 163-21880-11052823

PATIENT
  Age: 75 Year
  Sex: Female

DRUGS (5)
  1. METOPROLOL TARTRATE [Concomitant]
  2. REVLIMID [Suspect]
     Indication: MULTIPLE MYELOMA
     Dosage: 25 MG, DAILY FOR 21 DAYS, PO; 25 MG, DAILY FOR 21 DAYS, PO
     Route: 048
     Dates: start: 20110405
  3. REVLIMID [Suspect]
     Indication: MULTIPLE MYELOMA
     Dosage: 25 MG, DAILY FOR 21 DAYS, PO; 25 MG, DAILY FOR 21 DAYS, PO
     Route: 048
     Dates: start: 20110523
  4. GABAPENTIN [Concomitant]
  5. HYDROCODONE/ACETAMINOPHEN (REMEDEINE) [Concomitant]

REACTIONS (3)
  - TACHYCARDIA [None]
  - RASH [None]
  - PRURITUS [None]
